FAERS Safety Report 15239725 (Version 1)
Quarter: 2018Q3

REPORT INFORMATION
  Report Type: Spontaneous
  Country: US (occurrence: US)
  Receive Date: 20180803
  Receipt Date: 20180803
  Transmission Date: 20181010
  Serious: No
  Sender: FDA-Public Use
  Company Number: US-SUNOVION-2018SUN002962

PATIENT
  Sex: Female

DRUGS (3)
  1. LATUDA [Suspect]
     Active Substance: LURASIDONE HYDROCHLORIDE
     Dosage: UNK
     Route: 048
  2. LATUDA [Suspect]
     Active Substance: LURASIDONE HYDROCHLORIDE
     Dosage: 10 MG, UNK
     Route: 048
  3. LATUDA [Suspect]
     Active Substance: LURASIDONE HYDROCHLORIDE
     Dosage: 20 MG, UNK
     Route: 048

REACTIONS (10)
  - Underdose [Unknown]
  - Dysstasia [Unknown]
  - Extrapyramidal disorder [Unknown]
  - Somnolence [Unknown]
  - Feeling abnormal [Unknown]
  - Hunger [Unknown]
  - Chills [Unknown]
  - Akathisia [Unknown]
  - Weight increased [Unknown]
  - Tremor [Unknown]
